FAERS Safety Report 12228625 (Version 1)
Quarter: 2016Q1

REPORT INFORMATION
  Report Type: Spontaneous
  Country: US (occurrence: None)
  Receive Date: 20160331
  Receipt Date: 20160331
  Transmission Date: 20160526
  Serious: No
  Sender: FDA-Public Use
  Company Number: None

PATIENT
  Age: 54 Year
  Weight: 86.18 kg

DRUGS (4)
  1. FISH OIL [Concomitant]
     Active Substance: FISH OIL
  2. MAGNESIUM [Concomitant]
     Active Substance: MAGNESIUM
  3. AFRIN [Suspect]
     Active Substance: OXYMETAZOLINE
     Indication: NASAL CONGESTION
     Dosage: 2 SPRAY (S)
     Route: 045
     Dates: start: 20160324, end: 20160330
  4. MULTIVITAMIN [Concomitant]
     Active Substance: VITAMINS

REACTIONS (1)
  - Ventricular extrasystoles [None]

NARRATIVE: CASE EVENT DATE: 20160327
